FAERS Safety Report 18241953 (Version 1)
Quarter: 2020Q3

REPORT INFORMATION
  Report Type: Spontaneous
  Country: US (occurrence: US)
  Receive Date: 20200904
  Receipt Date: 20200904
  Transmission Date: 20201103
  Serious: Yes (Hospitalization)
  Sender: FDA-Public Use
  Company Number: None

PATIENT
  Age: 82 Year
  Sex: Female

DRUGS (14)
  1. HYPDROCO/APAP [Concomitant]
  2. LEVOFLOXACIN. [Concomitant]
     Active Substance: LEVOFLOXACIN
  3. NITROFUR MAC [Concomitant]
     Active Substance: NITROFURANTOIN
  4. NYSTATIN. [Concomitant]
     Active Substance: NYSTATIN
  5. CEPHALEXIN. [Concomitant]
     Active Substance: CEPHALEXIN
  6. CICLOPIROX CRE [Concomitant]
  7. SERTRALINE [Suspect]
     Active Substance: SERTRALINE HYDROCHLORIDE
  8. ZOLPIDEM [Concomitant]
     Active Substance: ZOLPIDEM TARTRATE
  9. ALBUTEROL AER [Concomitant]
     Active Substance: ALBUTEROL
  10. DIAZEPAM. [Concomitant]
     Active Substance: DIAZEPAM
  11. REPATHA [Suspect]
     Active Substance: EVOLOCUMAB
     Indication: LIPOPROTEIN DEFICIENCY
     Dosage: ?          OTHER DOSE:1 PEN;?
     Route: 058
     Dates: start: 20200825
  12. CIPROGLOXACIN [Concomitant]
  13. ONDANSETRON [Concomitant]
     Active Substance: ONDANSETRON
  14. OXYCODONE AND ACETAMINOPHEN [Concomitant]
     Active Substance: ACETAMINOPHEN\OXYCODONE HYDROCHLORIDE

REACTIONS (1)
  - Hospitalisation [None]

NARRATIVE: CASE EVENT DATE: 20200903
